FAERS Safety Report 8980264 (Version 2)
Quarter: 2012Q4

REPORT INFORMATION
  Report Type: Report from Study
  Country: SE (occurrence: SE)
  Receive Date: 20121221
  Receipt Date: 20121226
  Transmission Date: 20130627
  Serious: Yes (Hospitalization, Other)
  Sender: FDA-Public Use
  Company Number: PHHO2012SE017995

PATIENT
  Age: 38 Year
  Sex: Male

DRUGS (4)
  1. FTY [Suspect]
     Indication: MULTIPLE SCLEROSIS
     Dosage: 0.5 mg, QD
     Route: 048
     Dates: start: 20101203, end: 20121207
  2. FTY [Suspect]
     Dosage: 0.5 mg, QD
     Route: 048
     Dates: start: 20121211
  3. CYMBALTA [Concomitant]
     Indication: DEPRESSION
     Dosage: 30 mg, QD
     Route: 048
     Dates: start: 20121029
  4. PALEXIA [Concomitant]
     Indication: NEURALGIA
     Dosage: 150 mg, BID
     Route: 048
     Dates: start: 20120531

REACTIONS (3)
  - Gun shot wound [Recovering/Resolving]
  - Mental disorder [Recovering/Resolving]
  - Upper limb fracture [Recovering/Resolving]
